FAERS Safety Report 5093640-0 (Version None)
Quarter: 2006Q3

REPORT INFORMATION
  Report Type: 
  Country: None (occurrence: None)
  Receive Date: 20060829
  Receipt Date: 20060814
  Transmission Date: 20061208
  Serious: Yes (Hospitalization)
  Sender: FDA-Public Use
  Company Number: 2006S1007625

PATIENT
  Age: 38 Year
  Sex: Male
  Weight: 72.5755 kg

DRUGS (12)
  1. FENTANYL TRANSDERMAL SYSTEM [Suspect]
     Indication: MULTIPLE FRACTURES
     Dosage: 100 UG/HR; Q3D; TDER
     Route: 062
     Dates: start: 20060526
  2. FENTANYL TRANSDERMAL SYSTEM [Suspect]
     Indication: OSTEOARTHRITIS
     Dosage: 100 UG/HR; Q3D; TDER
     Route: 062
     Dates: start: 20060526
  3. FENTANYL TRANSDERMAL SYSTEM [Suspect]
     Indication: OSTEOPOROSIS
     Dosage: 100 UG/HR; Q3D; TDER
     Route: 062
     Dates: start: 20060526
  4. FENTANYL TRANSDERMAL SYSTEM [Suspect]
     Indication: PAIN
     Dosage: 100 UG/HR; Q3D; TDER
     Route: 062
     Dates: start: 20060526
  5. OXYCODONE HCL [Concomitant]
  6. TIZANIDINE HCL [Concomitant]
  7. CLONAZEPAM [Concomitant]
  8. TERIPARATIDE [Concomitant]
  9. RANITIDINE [Concomitant]
  10. FUROSEMIDE [Concomitant]
  11. CETIRIZINE HCL [Concomitant]
  12. ESCITALOPRAM OXALATE [Concomitant]

REACTIONS (16)
  - ABDOMINAL DISTENSION [None]
  - ABNORMAL DREAMS [None]
  - ANOREXIA [None]
  - BACK PAIN [None]
  - CONFUSIONAL STATE [None]
  - CONSTIPATION [None]
  - DIZZINESS [None]
  - FATIGUE [None]
  - HAEMOPTYSIS [None]
  - HEPATIC INFECTION [None]
  - HYPERHIDROSIS [None]
  - INFECTION [None]
  - NAUSEA [None]
  - OEDEMA PERIPHERAL [None]
  - PHARMACEUTICAL PRODUCT COMPLAINT [None]
  - PNEUMONIA [None]
